FAERS Safety Report 7010664-4 (Version None)
Quarter: 2010Q3

REPORT INFORMATION
  Report Type: 
  Country: None (occurrence: None)
  Receive Date: 20100923
  Receipt Date: 20100915
  Transmission Date: 20110219
  Serious: Yes (Hospitalization, Other)
  Sender: FDA-Public Use
  Company Number: US-AMGEN-QUU438800

PATIENT
  Sex: Female

DRUGS (9)
  1. NPLATE [Suspect]
     Indication: IDIOPATHIC THROMBOCYTOPENIC PURPURA
     Dates: start: 20100331
  2. CORTICOSTEROIDS [Concomitant]
     Dates: start: 19900401
  3. LYRICA [Concomitant]
  4. LASIX [Concomitant]
  5. NEXIUM [Concomitant]
  6. TRICOR [Concomitant]
  7. ATENOLOL [Concomitant]
  8. IMMU-G [Concomitant]
     Route: 042
  9. PREDNISONE TAB [Concomitant]

REACTIONS (15)
  - CLOSTRIDIAL INFECTION [None]
  - DEEP VEIN THROMBOSIS [None]
  - DEMYELINATING POLYNEUROPATHY [None]
  - ENTEROCOCCAL INFECTION [None]
  - ENTEROCOCCAL SEPSIS [None]
  - FAILURE TO THRIVE [None]
  - HYDRONEPHROSIS [None]
  - HYPERTENSION [None]
  - HYPOXIA [None]
  - IMMUNOSUPPRESSION [None]
  - MALNUTRITION [None]
  - ORGANISING PNEUMONIA [None]
  - RENAL FAILURE [None]
  - URINARY RETENTION [None]
  - URINARY TRACT INFECTION [None]
